FAERS Safety Report 5298940-7 (Version None)
Quarter: 2007Q2

REPORT INFORMATION
  Report Type: 
  Country: None (occurrence: None)
  Receive Date: 20070417
  Receipt Date: 20070405
  Transmission Date: 20071010
  Serious: Yes (Other)
  Sender: FDA-Public Use
  Company Number: PHMT2007CA01011

PATIENT
  Age: 71 Year
  Sex: Female

DRUGS (5)
  1. ACLASTA [Suspect]
     Dosage: 5 MG
     Dates: start: 20070327
  2. FLOVENT [Concomitant]
     Dosage: DAILY
  3. AVAPRO [Concomitant]
     Dosage: 150 MG, QD
  4. CALCIUM [Concomitant]
     Dosage: 1500 DAILY
  5. VITAMIN D [Concomitant]
     Dosage: 1000 MG, QD

REACTIONS (5)
  - ARTHRALGIA [None]
  - GINGIVAL SWELLING [None]
  - MYALGIA [None]
  - PAIN IN JAW [None]
  - SLEEP DISORDER [None]
